FAERS Safety Report 10240227 (Version 1)
Quarter: 2014Q2

REPORT INFORMATION
  Report Type: Spontaneous
  Country: SG (occurrence: SG)
  Receive Date: 20140617
  Receipt Date: 20140617
  Transmission Date: 20141212
  Serious: Yes (Hospitalization)
  Sender: FDA-Public Use
  Company Number: PHHY2014SG071337

PATIENT
  Age: 62 Year
  Sex: Female

DRUGS (2)
  1. DIGOXIN [Suspect]
     Indication: ARRHYTHMIA
  2. WARFARIN [Suspect]
     Indication: ANTICOAGULANT THERAPY

REACTIONS (2)
  - International normalised ratio increased [Recovered/Resolved]
  - Cardioactive drug level increased [Unknown]
